FAERS Safety Report 7125082-8 (Version None)
Quarter: 2010Q4

REPORT INFORMATION
  Report Type: 
  Country: None (occurrence: None)
  Receive Date: 20101129
  Receipt Date: 20101013
  Transmission Date: 20110411
  Serious: Yes (Hospitalization)
  Sender: FDA-Public Use
  Company Number: US-AMGEN-USASP2010000801

PATIENT

DRUGS (1)
  1. PROCRIT [Suspect]
     Indication: LEUKAEMIA
     Dosage: 40000 IU, QWK
     Route: 058
     Dates: start: 20100201, end: 20100201

REACTIONS (3)
  - CHEST PAIN [None]
  - SPLENOMEGALY [None]
  - WEIGHT DECREASED [None]
